FAERS Safety Report 18303267 (Version 1)
Quarter: 2020Q3

REPORT INFORMATION
  Report Type: Spontaneous
  Country: US (occurrence: US)
  Receive Date: 20200924
  Receipt Date: 20200924
  Transmission Date: 20201103
  Serious: No
  Sender: FDA-Public Use
  Company Number: US-TARO-2019TAR00704

PATIENT

DRUGS (2)
  1. EQUATE CHILDREN^S HOMEOPATHIC DAYTIME COLD + COUGH [Suspect]
     Active Substance: HOMEOPATHICS
  2. LORATADINE ORAL SOLUTION USP 5MG/5ML [Suspect]
     Active Substance: LORATADINE
     Dosage: UNK

REACTIONS (1)
  - Drug ineffective [Recovered/Resolved]
